FAERS Safety Report 22044918 (Version 1)
Quarter: 2023Q1

REPORT INFORMATION
  Report Type: Spontaneous
  Country: CN (occurrence: CN)
  Receive Date: 20230228
  Receipt Date: 20230228
  Transmission Date: 20230418
  Serious: Yes (Hospitalization)
  Sender: FDA-Public Use
  Company Number: CN-BAYER-2023A021254

PATIENT
  Age: 54 Year
  Sex: Male

DRUGS (2)
  1. SORAFENIB [Suspect]
     Active Substance: SORAFENIB
     Indication: Hepatocellular carcinoma
  2. SORAFENIB [Suspect]
     Active Substance: SORAFENIB
     Indication: Metastases to lung

REACTIONS (4)
  - Cough [None]
  - Haemoptysis [None]
  - Exercise tolerance decreased [None]
  - Hypertension [None]
